FAERS Safety Report 13357302 (Version 1)
Quarter: 2017Q1

REPORT INFORMATION
  Report Type: Report from Study
  Country: CA (occurrence: CA)
  Receive Date: 20170322
  Receipt Date: 20170322
  Transmission Date: 20170429
  Serious: Yes (Other)
  Sender: FDA-Public Use
  Company Number: CA-AMGEN-CANSL2017040108

PATIENT
  Age: 78 Year
  Sex: Female

DRUGS (9)
  1. SENSIPAR [Suspect]
     Active Substance: CINACALCET HYDROCHLORIDE
     Indication: PRODUCT USED FOR UNKNOWN INDICATION
     Dosage: 30 MG, BID
     Route: 065
  2. PANTOPRAZOLE [Concomitant]
     Active Substance: PANTOPRAZOLE SODIUM
     Dosage: 40 MG, UNK
  3. LINAGLIPTIN [Concomitant]
     Active Substance: LINAGLIPTIN
     Dosage: 5 MG, UNK
  4. VITAMIN D [Concomitant]
     Active Substance: CHOLECALCIFEROL
     Dosage: UNK
  5. AMLODIPINE BESYLATE. [Concomitant]
     Active Substance: AMLODIPINE BESYLATE
     Dosage: 5 MG, UNK
  6. NTG [Concomitant]
     Active Substance: NITROGLYCERIN
     Dosage: 0.4 MG, UNK
  7. REPATHA [Suspect]
     Active Substance: EVOLOCUMAB
     Indication: TYPE IIA HYPERLIPIDAEMIA
     Dosage: UNK
     Route: 065
     Dates: start: 20170215
  8. NOVOLIN GE [Concomitant]
     Active Substance: INSULIN HUMAN
     Dosage: UNK UNK, TID
  9. INSULIN ASPART [Concomitant]
     Active Substance: INSULIN ASPART

REACTIONS (9)
  - Abasia [Unknown]
  - Malaise [Not Recovered/Not Resolved]
  - Coma [Unknown]
  - Thyroid disorder [Unknown]
  - Injection site pain [Unknown]
  - Myocardial infarction [Unknown]
  - Dysstasia [Unknown]
  - Coronary artery bypass [Unknown]
  - Blood calcium abnormal [Unknown]

NARRATIVE: CASE EVENT DATE: 2006
